FAERS Safety Report 6408075-5 (Version None)
Quarter: 2009Q4

REPORT INFORMATION
  Report Type: 
  Country: None (occurrence: None)
  Receive Date: 20091021
  Receipt Date: 20091009
  Transmission Date: 20100525
  Serious: Yes (Hospitalization)
  Sender: FDA-Public Use
  Company Number: US-WYE-H10726509

PATIENT
  Age: 38 Year
  Sex: Female
  Weight: 99.88 kg

DRUGS (1)
  1. PRISTIQ [Suspect]
     Indication: DEPRESSION
     Dosage: UNKNOWN
     Dates: start: 20090301, end: 20090304

REACTIONS (3)
  - ATRIAL FLUTTER [None]
  - CHEST DISCOMFORT [None]
  - CHEST PAIN [None]
